FAERS Safety Report 8917166 (Version 1)
Quarter: 2012Q4

REPORT INFORMATION
  Report Type: 
  Country: US (occurrence: US)
  Receive Date: 20121120
  Receipt Date: 20121120
  Transmission Date: 20130627
  Serious: No
  Sender: FDA-Public Use
  Company Number: US-ALLERGAN-1210651US

PATIENT
  Age: 72 Year
  Sex: Female

DRUGS (3)
  1. LASTACAFT [Suspect]
     Indication: SEASONAL ALLERGY
     Dosage: 1 Gtt OU, qd
     Route: 047
  2. LASTACAFT [Suspect]
     Dosage: 1 Gtt OU, qd
     Route: 047
  3. ALLEGRA [Concomitant]
     Indication: SEASONAL ALLERGY
     Route: 048

REACTIONS (2)
  - Eyelids pruritus [Recovering/Resolving]
  - Eyelid thickening [Recovering/Resolving]
